FAERS Safety Report 13877458 (Version 3)
Quarter: 2017Q4

REPORT INFORMATION
  Report Type: Spontaneous
  Country: JP (occurrence: JP)
  Receive Date: 20170817
  Receipt Date: 20171109
  Transmission Date: 20180320
  Serious: Yes (Other)
  Sender: FDA-Public Use
  Company Number: JP-CELGENEUS-JPN-20170703686

PATIENT
  Age: 77 Year
  Sex: Male

DRUGS (5)
  1. MARDUOX [Concomitant]
     Indication: PSORIASIS
     Route: 062
     Dates: start: 20170419
  2. STIBRON [Concomitant]
     Indication: PSORIASIS
     Route: 062
     Dates: start: 20101102
  3. VITAMIN D [Concomitant]
     Active Substance: CHOLECALCIFEROL
     Indication: PRODUCT USED FOR UNKNOWN INDICATION
     Route: 065
  4. OTEZLA [Suspect]
     Active Substance: APREMILAST
     Indication: PSORIASIS
     Dosage: 10-30MG
     Route: 048
     Dates: start: 20170705, end: 20170712
  5. OXAROL [Concomitant]
     Active Substance: MAXACALCITOL
     Indication: PSORIASIS
     Route: 062
     Dates: start: 20101102

REACTIONS (1)
  - Hepatitis B DNA increased [Recovering/Resolving]

NARRATIVE: CASE EVENT DATE: 20170710
